FAERS Safety Report 24752545 (Version 1)
Quarter: 2024Q4

REPORT INFORMATION
  Report Type: Spontaneous
  Country: US (occurrence: US)
  Receive Date: 20241219
  Receipt Date: 20241219
  Transmission Date: 20250115
  Serious: No
  Sender: ALMUS
  Company Number: US-ALMIRALL-US-2024-3270

PATIENT
  Sex: Female

DRUGS (1)
  1. KLISYRI [Suspect]
     Active Substance: TIRBANIBULIN
     Indication: Actinic keratosis
     Dates: end: 20241125

REACTIONS (5)
  - Off label use [Unknown]
  - Application site vesicles [Unknown]
  - Rash erythematous [Not Recovered/Not Resolved]
  - Rash macular [Unknown]
  - Application site discolouration [Unknown]

NARRATIVE: CASE EVENT DATE: 20240101
